FAERS Safety Report 5884037-1 (Version None)
Quarter: 2008Q3

REPORT INFORMATION
  Report Type: 
  Country: None (occurrence: None)
  Receive Date: 20080911
  Receipt Date: 20080905
  Transmission Date: 20090109
  Serious: Yes (Life-Threatening)
  Sender: FDA-Public Use
  Company Number: 6040209

PATIENT
  Age: 80 Year
  Sex: Female

DRUGS (5)
  1. BISOPROLOL FUMARATE [Suspect]
     Indication: MYOCARDIAL ISCHAEMIA
     Dosage: (1 IN 1 D) ORAL
     Route: 048
     Dates: start: 20071023, end: 20071125
  2. FUROSEMIDE [Concomitant]
  3. RAMIPRIL [Concomitant]
  4. COUMADIN [Concomitant]
  5. LANOXIN [Concomitant]

REACTIONS (3)
  - BRONCHOSPASM [None]
  - BRONCHOSTENOSIS [None]
  - DYSPNOEA [None]
